FAERS Safety Report 17982486 (Version 1)
Quarter: 2020Q3

REPORT INFORMATION
  Report Type: Spontaneous
  Country: US (occurrence: US)
  Receive Date: 20200702
  Receipt Date: 20200702
  Transmission Date: 20201103
  Serious: Yes (Other)
  Sender: FDA-Public Use
  Company Number: None

PATIENT
  Age: 73 Year
  Sex: Male
  Weight: 68.04 kg

DRUGS (6)
  1. DIVALPROX ER [Concomitant]
  2. IRON [Concomitant]
     Active Substance: IRON
  3. ITAMSULOSIN HCL 0.4MG CAPSULE BY CITRON PHARMACAL [Suspect]
     Active Substance: TAMSULOSIN HYDROCHLORIDE
     Indication: URINARY RETENTION
     Dosage: ?          QUANTITY:2 DF DOSAGE FORM;?
     Route: 048
     Dates: start: 20200124, end: 20200124
  4. CALCIUM [Concomitant]
     Active Substance: CALCIUM
  5. MULT?VITAMIN [Concomitant]
  6. GELATIN [Concomitant]
     Active Substance: GELATIN

REACTIONS (3)
  - Meniere^s disease [None]
  - Dizziness [None]
  - Drug interaction [None]
